FAERS Safety Report 5926442-0 (Version None)
Quarter: 2008Q4

REPORT INFORMATION
  Report Type: 
  Country: None (occurrence: None)
  Receive Date: 20081022
  Receipt Date: 20081016
  Transmission Date: 20090506
  Serious: Yes (Hospitalization)
  Sender: FDA-Public Use
  Company Number: CH-ASTRAZENECA-2008PK02268

PATIENT
  Age: 31 Year
  Sex: Female

DRUGS (7)
  1. SEROQUEL [Suspect]
     Route: 048
     Dates: start: 20070101
  2. FLUCTINE [Interacting]
     Route: 048
     Dates: start: 20050101, end: 20080827
  3. SURMONTIL [Interacting]
     Route: 048
     Dates: start: 20080820, end: 20080905
  4. MORPHINE SULFATE [Interacting]
     Route: 048
     Dates: start: 20070101, end: 20080907
  5. MORPHINE SULFATE [Interacting]
     Route: 048
     Dates: start: 20080908
  6. NOPIL FORTE [Interacting]
     Dosage: 960 MG TO 4800 MG
     Route: 048
     Dates: start: 20080821, end: 20080827
  7. FERRUM HAUSMANN [Concomitant]
     Route: 048
     Dates: start: 20080807

REACTIONS (2)
  - DRUG INTERACTION [None]
  - GRAND MAL CONVULSION [None]
